FAERS Safety Report 7889003-2 (Version None)
Quarter: 2011Q4

REPORT INFORMATION
  Report Type: 
  Country: None (occurrence: None)
  Receive Date: 20111103
  Receipt Date: 20111031
  Transmission Date: 20120403
  Serious: Yes (Hospitalization)
  Sender: FDA-Public Use
  Company Number: DE-AMGEN-DEUNI2011040947

PATIENT
  Age: 76 Year
  Sex: Male

DRUGS (12)
  1. ROZEX [Concomitant]
     Indication: DERMATITIS
     Dosage: UNK
     Route: 061
     Dates: end: 20100624
  2. PANTOPRAZOLE SODIUM [Concomitant]
  3. TORSEMIDE [Concomitant]
     Indication: OEDEMA
     Dosage: 5 MG, UNK
     Route: 048
     Dates: start: 20100615, end: 20100624
  4. PANITUMUMAB [Suspect]
     Indication: COLORECTAL CANCER
     Dosage: 470 MG, Q2WK
     Route: 042
     Dates: start: 20100615, end: 20100824
  5. BISOPROLOL [Concomitant]
  6. TAZOBAC [Concomitant]
  7. EUNERPAN [Concomitant]
  8. PLAVIX [Concomitant]
  9. ASPIRIN [Concomitant]
  10. ENALAPRIL MALEATE [Concomitant]
  11. LORAZEPAM [Concomitant]
  12. TAMSULOSIN HCL [Concomitant]

REACTIONS (2)
  - PYREXIA [None]
  - INFECTION [None]
